FAERS Safety Report 23779022 (Version 1)
Quarter: 2024Q2

REPORT INFORMATION
  Report Type: Spontaneous
  Country: US (occurrence: US)
  Receive Date: 20240424
  Receipt Date: 20240424
  Transmission Date: 20240716
  Serious: Yes (Hospitalization, Other)
  Sender: FDA-Public Use
  Company Number: US-ALEMBIC PHARMACUETICALS LIMITED-2024SCAL000478

PATIENT

DRUGS (1)
  1. LITHIUM CARBONATE [Suspect]
     Active Substance: LITHIUM CARBONATE
     Indication: Schizoaffective disorder
     Dosage: UNK
     Route: 065

REACTIONS (25)
  - Emphysematous cholecystitis [Unknown]
  - Respiratory failure [Unknown]
  - Septic shock [Unknown]
  - Mental status changes [Recovering/Resolving]
  - Disorganised speech [Unknown]
  - Hypotension [Unknown]
  - Agitation [Unknown]
  - Speech disorder [Unknown]
  - Tachypnoea [Unknown]
  - Respiratory alkalosis [Unknown]
  - Haemodynamic instability [Recovering/Resolving]
  - Acidosis [Unknown]
  - Antipsychotic drug level increased [Recovering/Resolving]
  - Acute cholecystitis necrotic [Recovering/Resolving]
  - Sepsis [Recovering/Resolving]
  - Renal impairment [Unknown]
  - Dyspnoea [Unknown]
  - Disorientation [Unknown]
  - Acute kidney injury [Recovering/Resolving]
  - Gait disturbance [Unknown]
  - Toxicity to various agents [Unknown]
  - Leukocytosis [Unknown]
  - Acidosis hyperchloraemic [Unknown]
  - Neutrophil count increased [Unknown]
  - Encephalopathy [Recovering/Resolving]
